FAERS Safety Report 10064985 (Version 1)
Quarter: 2014Q1

REPORT INFORMATION
  Report Type: Spontaneous
  Country: US (occurrence: None)
  Receive Date: 20140328
  Receipt Date: 20140328
  Transmission Date: 20141002
  Serious: No
  Sender: FDA-Public Use
  Company Number: 1000052796

PATIENT
  Sex: Female

DRUGS (7)
  1. LINZESS (LINACLOTIDE) (290 MICROGRAM, CAPSULES) [Suspect]
     Indication: IRRITABLE BOWEL SYNDROME
     Route: 048
     Dates: start: 20131218
  2. BENTYL (DICYCLOVERINE HYDROCHLORIDE) [Concomitant]
  3. TRAMADOL (TRAMADOL) [Concomitant]
  4. ALPRAZOLAM (ALPRAZOLAM) [Concomitant]
  5. CYMBALTA [Concomitant]
  6. LMAICTAL (LAMOTRIGINE) [Concomitant]
  7. TRAZODONE (TRAZODONE) [Concomitant]

REACTIONS (2)
  - Abdominal pain [None]
  - Nausea [None]
